FAERS Safety Report 9752582 (Version 1)
Quarter: 2013Q4

REPORT INFORMATION
  Report Type: Spontaneous
  Country: US (occurrence: None)
  Receive Date: 20131211
  Receipt Date: 20131211
  Transmission Date: 20140711
  Serious: Yes (Hospitalization)
  Sender: FDA-Public Use
  Company Number: None

PATIENT
  Age: 64 Year
  Sex: Male
  Weight: 110 kg

DRUGS (2)
  1. CISPLATIN [Suspect]
  2. ETOPOSIDE (VP-16) [Suspect]

REACTIONS (7)
  - Hypotension [None]
  - Tachycardia [None]
  - Confusional state [None]
  - Lobar pneumonia [None]
  - Klebsiella bacteraemia [None]
  - Atrial fibrillation [None]
  - Pancytopenia [None]
